FAERS Safety Report 7232355 (Version 28)
Quarter: 2014Q1

REPORT INFORMATION
  Report Type: Spontaneous
  Country: US (occurrence: US)
  Receive Date: 20091229
  Receipt Date: 20140318
  Transmission Date: 20141002
  Serious: Yes (Other)
  Sender: FDA-Public Use
  Company Number: PHEH2009US17987

PATIENT
  Sex: Male

DRUGS (41)
  1. ZOMETA [Suspect]
     Dosage: 4 MG, QMO
     Route: 042
     Dates: end: 2007
  2. VINCRISTINE [Suspect]
  3. XELODA [Suspect]
     Indication: BREAST CANCER METASTATIC
  4. MORPHINE [Concomitant]
  5. MS CONTIN [Concomitant]
  6. LEVAQUIN [Concomitant]
  7. ROBITUSSIN [Concomitant]
  8. MARINOL [Concomitant]
  9. SENOKOT                                 /UNK/ [Concomitant]
  10. MIRALAX [Concomitant]
  11. ROXANOL [Concomitant]
  12. ATIVAN [Concomitant]
  13. ARIXTRA [Concomitant]
  14. COUMADIN [Concomitant]
  15. LAPATINIB [Concomitant]
  16. DURAGESIC [Concomitant]
  17. ADVAIR [Concomitant]
  18. PREDNISONE [Concomitant]
  19. SPIRIVA [Concomitant]
  20. COMBIVENT                               /GFR/ [Concomitant]
  21. DECADRON                                /CAN/ [Concomitant]
  22. VANCOMYCIN [Concomitant]
  23. CHANTIX [Concomitant]
  24. FENTANYL [Concomitant]
  25. CIPROFLOXACIN [Concomitant]
  26. TYLENOL [Concomitant]
  27. PROTONIX [Concomitant]
  28. MEGACE [Concomitant]
  29. REGLAN                                  /USA/ [Concomitant]
  30. PREVACID [Concomitant]
  31. CYMBALTA [Concomitant]
  32. XANAX [Concomitant]
  33. NEURONTIN [Concomitant]
  34. XOPENEX [Concomitant]
  35. AMBIEN [Concomitant]
  36. HYDROCODONE [Concomitant]
  37. TYKERB [Concomitant]
  38. ZOFRAN [Concomitant]
  39. CRESTOR [Concomitant]
  40. ZETIA [Concomitant]
  41. GABAPENTIN [Concomitant]

REACTIONS (92)
  - Osteonecrosis of jaw [Unknown]
  - Deformity [Unknown]
  - Pain [Unknown]
  - Infection [Unknown]
  - Injury [Unknown]
  - Emotional distress [Unknown]
  - Anxiety [Unknown]
  - Physical disability [Unknown]
  - Overdose [Unknown]
  - Haemangioma of bone [Unknown]
  - Seborrhoeic keratosis [Unknown]
  - Acne [Recovering/Resolving]
  - Hypoaesthesia [Unknown]
  - Pain in jaw [Unknown]
  - Mass [Unknown]
  - Bone cancer [Unknown]
  - Leiomyosarcoma [Unknown]
  - Rhabdomyosarcoma [Unknown]
  - Skin lesion [Unknown]
  - Neck mass [Unknown]
  - Local swelling [Unknown]
  - Neoplasm [Unknown]
  - Excessive granulation tissue [Unknown]
  - Sensory loss [Unknown]
  - Loose tooth [Unknown]
  - Exposed bone in jaw [Unknown]
  - Primary sequestrum [Unknown]
  - Polyp [Unknown]
  - Soft tissue mass [Unknown]
  - Gingival disorder [Unknown]
  - Tooth loss [Unknown]
  - Stomatitis [Unknown]
  - Cardiac disorder [Unknown]
  - Hepatic cancer [Unknown]
  - Oral discharge [Unknown]
  - Gingival erosion [Unknown]
  - Bone erosion [Unknown]
  - Mastication disorder [Unknown]
  - Periodontitis [Unknown]
  - Bacterial infection [Recovered/Resolved]
  - Bone sarcoma [Unknown]
  - Gastritis [Unknown]
  - Osteoradionecrosis [Unknown]
  - Oral dysaesthesia [Unknown]
  - Trigeminal neuralgia [Unknown]
  - Paraesthesia oral [Unknown]
  - Brain neoplasm malignant [Unknown]
  - Nasal septum deviation [Unknown]
  - Venous angioma of brain [Unknown]
  - Dysphagia [Unknown]
  - Haemorrhage [Unknown]
  - Trismus [Unknown]
  - Catheter site infection [Unknown]
  - Neuropathy peripheral [Unknown]
  - Eschar [Unknown]
  - Thrombocytopenia [Unknown]
  - Muscle tightness [Unknown]
  - Hypertrophic scar [Unknown]
  - Neutropenia [Unknown]
  - Alopecia [Unknown]
  - Skin infection [Unknown]
  - Chronic sinusitis [Unknown]
  - Laryngitis [Unknown]
  - Syncope [Unknown]
  - Sinus disorder [Unknown]
  - Dental plaque [Unknown]
  - Tooth deposit [Unknown]
  - Exostosis [Unknown]
  - Device malfunction [Unknown]
  - Dry eye [Unknown]
  - Facial pain [Unknown]
  - Deafness [Recovered/Resolved]
  - Tympanic membrane scarring [Unknown]
  - Salivary gland atrophy [Unknown]
  - Ear pain [Unknown]
  - Effusion [Unknown]
  - Melanocytic naevus [Unknown]
  - Oral candidiasis [Unknown]
  - Anal fissure [Unknown]
  - Lymphadenopathy [Unknown]
  - Seborrhoeic dermatitis [Unknown]
  - Insomnia [Unknown]
  - Anogenital warts [Unknown]
  - Otitis externa [Unknown]
  - Tinnitus [Recovered/Resolved]
  - Pulmonary mass [Unknown]
  - Conjunctivitis allergic [Unknown]
  - Rhinitis allergic [Unknown]
  - Nasal inflammation [Unknown]
  - Epistaxis [Unknown]
  - Tenosynovitis stenosans [Unknown]
  - Neuralgia [Unknown]
